FAERS Safety Report 4353291-X (Version None)
Quarter: 2004Q2

REPORT INFORMATION
  Report Type: 
  Country: None (occurrence: None)
  Receive Date: 20040504
  Receipt Date: 20040504
  Transmission Date: 20050107
  Serious: Yes (Life-Threatening, Hospitalization, Other)
  Sender: FDA-Public Use
  Company Number: None

PATIENT
  Age: 49 Year
  Sex: Female
  Weight: 58.9676 kg

DRUGS (1)
  1. EFFEXOR [Suspect]
     Indication: DEPRESSION
     Dosage: 300MG 1 DAILY ORAL
     Route: 048

REACTIONS (3)
  - IMPAIRED WORK ABILITY [None]
  - MARITAL PROBLEM [None]
  - SUICIDAL IDEATION [None]
